FAERS Safety Report 8549332-6 (Version None)
Quarter: 2012Q3

REPORT INFORMATION
  Report Type: 
  Country: None (occurrence: None)
  Receive Date: 20120730
  Receipt Date: 20120716
  Transmission Date: 20120928
  Serious: Yes (Death, Hospitalization)
  Sender: FDA-Public Use
  Company Number: ES-ROCHE-1087359

PATIENT
  Sex: Female
  Weight: 57 kg

DRUGS (4)
  1. CARBOPLATIN [Suspect]
     Indication: BREAST CANCER METASTATIC
     Route: 042
     Dates: start: 20120608, end: 20120608
  2. HERCEPTIN [Suspect]
     Indication: BREAST CANCER METASTATIC
     Route: 042
     Dates: start: 20120608, end: 20120608
  3. ZOLEDRONIC ACID [Suspect]
     Indication: BREAST CANCER METASTATIC
     Dates: start: 20120427
  4. HERCEPTIN [Suspect]
     Dates: start: 20120427

REACTIONS (2)
  - RESPIRATORY FAILURE [None]
  - NON-CARDIOGENIC PULMONARY OEDEMA [None]
